FAERS Safety Report 10750614 (Version 2)
Quarter: 2015Q2

REPORT INFORMATION
  Report Type: Report from Study
  Country: GB (occurrence: GB)
  Receive Date: 20150130
  Receipt Date: 20150427
  Transmission Date: 20150821
  Serious: Yes (Death)
  Sender: FDA-Public Use
  Company Number: GB-ASTRAZENECA-2015SE09066

PATIENT
  Age: 61 Year
  Sex: Female
  Weight: 66.5 kg

DRUGS (2)
  1. AZD2281 [Suspect]
     Active Substance: OLAPARIB
     Indication: GLIOBLASTOMA
     Route: 048
     Dates: start: 20141219, end: 20150112
  2. TEMOZOLOMIDE. [Suspect]
     Active Substance: TEMOZOLOMIDE
     Indication: GLIOBLASTOMA
     Route: 048
     Dates: start: 20141222, end: 20150112

REACTIONS (3)
  - Septic shock [Fatal]
  - Pancytopenia [Fatal]
  - Acute kidney injury [Fatal]

NARRATIVE: CASE EVENT DATE: 20150121
